FAERS Safety Report 8758010 (Version 3)
Quarter: 2014Q2

REPORT INFORMATION
  Report Type: Spontaneous
  Country: DE (occurrence: DE)
  Receive Date: 20120828
  Receipt Date: 20131017
  Transmission Date: 20141212
  Serious: Yes (Other)
  Sender: FDA-Public Use
  Company Number: DE-PFIZER INC-2012207027

PATIENT
  Age: 31 Year
  Sex: Female

DRUGS (1)
  1. TRIGOA [Suspect]
     Indication: CONTRACEPTION
     Dosage: 1 DF, 1X/DAY
     Route: 048
     Dates: start: 200709, end: 201206

REACTIONS (2)
  - Dental fistula [Unknown]
  - Condition aggravated [Unknown]
